FAERS Safety Report 18074185 (Version 1)
Quarter: 2020Q3

REPORT INFORMATION
  Report Type: Spontaneous
  Country: CA (occurrence: CA)
  Receive Date: 20200727
  Receipt Date: 20200727
  Transmission Date: 20201103
  Serious: Yes (Other)
  Sender: FDA-Public Use
  Company Number: CA-PFIZER INC-2020281765

PATIENT
  Age: 46 Year
  Sex: Male

DRUGS (2)
  1. DEPO?MEDROL [Suspect]
     Active Substance: METHYLPREDNISOLONE ACETATE
     Dosage: 160 MG
     Route: 065
  2. PREDNISONE TEVA [Suspect]
     Active Substance: PREDNISONE
     Route: 065

REACTIONS (14)
  - Amnesia [Unknown]
  - Hypotension [Unknown]
  - Sensitive skin [Unknown]
  - Migraine [Unknown]
  - Disturbance in attention [Unknown]
  - Gait disturbance [Unknown]
  - Dyskinesia [Unknown]
  - Dyspnoea [Unknown]
  - Mental impairment [Unknown]
  - Tremor [Unknown]
  - Coordination abnormal [Unknown]
  - Memory impairment [Unknown]
  - Restless legs syndrome [Unknown]
  - Seizure [Unknown]
